FAERS Safety Report 4620949-4 (Version None)
Quarter: 2005Q1

REPORT INFORMATION
  Report Type: 
  Country: None (occurrence: None)
  Receive Date: 20050325
  Receipt Date: 20050321
  Transmission Date: 20050727
  Serious: Yes (Other)
  Sender: FDA-Public Use
  Company Number: GBWYE524622MAR05

PATIENT
  Age: 34 Year
  Sex: Male

DRUGS (2)
  1. EFFEXOR XR [Suspect]
     Indication: DEPRESSION
     Dosage: ONE A DAY, ORAL; 19-12 MONTHS
     Route: 048
     Dates: start: 20040101
  2. VALPROATE SODIUM [Suspect]
     Indication: EPILEPSY

REACTIONS (3)
  - CONDITION AGGRAVATED [None]
  - DRUG INTERACTION [None]
  - EPILEPSY [None]
